FAERS Safety Report 9417237 (Version 1)
Quarter: 2013Q3

REPORT INFORMATION
  Report Type: Spontaneous
  Country: US (occurrence: US)
  Receive Date: 20130724
  Receipt Date: 20130724
  Transmission Date: 20140515
  Serious: No
  Sender: FDA-Public Use
  Company Number: US-BAUSCH-BL-2013-002687

PATIENT
  Sex: Male

DRUGS (1)
  1. OPCON-A [Suspect]
     Indication: HYPERSENSITIVITY
     Dosage: ONE DROP INTO EACH EYE DAILY
     Route: 047
     Dates: start: 20130502

REACTIONS (2)
  - Instillation site pain [Recovered/Resolved]
  - Expired drug administered [Recovered/Resolved]
